FAERS Safety Report 11653521 (Version 1)
Quarter: 2015Q4

REPORT INFORMATION
  Report Type: Report from Study
  Country: US (occurrence: US)
  Receive Date: 20151022
  Receipt Date: 20151022
  Transmission Date: 20160304
  Serious: No
  Sender: FDA-Public Use
  Company Number: US-009507513-1510USA010008

PATIENT

DRUGS (1)
  1. KEYTRUDA [Suspect]
     Active Substance: PEMBROLIZUMAB
     Dosage: 12.5 MG/ML (HIGHER THAN RECOMMENDED CONCENTRATION)

REACTIONS (2)
  - Overdose [Unknown]
  - No adverse event [Unknown]
